FAERS Safety Report 4312983-9 (Version None)
Quarter: 2004Q1

REPORT INFORMATION
  Report Type: 
  Country: None (occurrence: None)
  Receive Date: 20040226
  Receipt Date: 20040220
  Transmission Date: 20041129
  Serious: Yes (Hospitalization)
  Sender: FDA-Public Use
  Company Number: E2004-00510

PATIENT
  Age: 29 Year
  Sex: Female

DRUGS (1)
  1. TUBERTEST (TUBERCULIN PPD (M) 5 TU) [Suspect]
     Indication: TUBERCULIN TEST
     Dosage: 1.0 DP I.D.
     Route: 023
     Dates: start: 20040203

REACTIONS (5)
  - MALAISE [None]
  - NAUSEA [None]
  - PERIPHERAL COLDNESS [None]
  - PULSE PRESSURE DECREASED [None]
  - TACHYCARDIA [None]
